FAERS Safety Report 7334842-X (Version None)
Quarter: 2011Q1

REPORT INFORMATION
  Report Type: 
  Country: None (occurrence: None)
  Receive Date: 20110301
  Receipt Date: 20110301
  Transmission Date: 20110831
  Serious: Yes (Other)
  Sender: FDA-Public Use
  Company Number: None

PATIENT
  Age: 50 Year
  Sex: Female
  Weight: 70 kg

DRUGS (1)
  1. TIGECYCLINE [Suspect]
     Indication: DEVICE RELATED INFECTION
     Dosage: 50 MG Q 12 HOURS IV
     Route: 042
     Dates: start: 20100915, end: 20100918

REACTIONS (2)
  - LIVER FUNCTION TEST ABNORMAL [None]
  - DEVICE RELATED INFECTION [None]
